FAERS Safety Report 14540629 (Version 2)
Quarter: 2018Q1

REPORT INFORMATION
  Report Type: Spontaneous
  Country: US (occurrence: US)
  Receive Date: 20180216
  Receipt Date: 20180330
  Transmission Date: 20180509
  Serious: Yes (Other)
  Sender: FDA-Public Use
  Company Number: US-SAOL THERAPEUTICS-2018SAO00195

PATIENT
  Sex: Female
  Weight: 53.52 kg

DRUGS (32)
  1. MORPHINE [Suspect]
     Active Substance: MORPHINE
     Route: 037
  2. LEVOXYL [Concomitant]
     Active Substance: LEVOTHYROXINE SODIUM
  3. NYSTATIN/TRIAMCINOLONE [Concomitant]
     Active Substance: NYSTATIN\TRIAMCINOLONE
  4. WELLBUTRIN [Concomitant]
     Active Substance: BUPROPION HYDROCHLORIDE
  5. ^OTHER^ [Suspect]
     Active Substance: UNSPECIFIED INGREDIENT
     Route: 037
  6. COENZYME Q10 [Concomitant]
     Active Substance: UBIDECARENONE
  7. PROMETHAZINE [Concomitant]
     Active Substance: PROMETHAZINE\PROMETHAZINE HYDROCHLORIDE
  8. SENOKOT [Concomitant]
     Active Substance: SENNOSIDES
  9. VSL #3 [Concomitant]
  10. HYDROMORPHONE [Suspect]
     Active Substance: HYDROMORPHONE
     Dosage: 132.3 ?G, \DAY
     Route: 037
     Dates: start: 20171025
  11. VITAMIN D3 [Concomitant]
     Active Substance: CHOLECALCIFEROL
  12. ZENPEP [Concomitant]
     Active Substance: PANCRELIPASE AMYLASE\PANCRELIPASE LIPASE\PANCRELIPASE PROTEASE
  13. COMPOUNDED BACLOFEN [Suspect]
     Active Substance: BACLOFEN
     Dosage: UNK ?G, UNK
     Route: 037
     Dates: start: 20151027
  14. ALPHA LIPOIC ACID [Concomitant]
     Active Substance: .ALPHA.-LIPOIC ACID
  15. VITAMIN B12 [Concomitant]
     Active Substance: CYANOCOBALAMIN
  16. MAXALT [Concomitant]
     Active Substance: RIZATRIPTAN BENZOATE
  17. SKELAXIN [Concomitant]
     Active Substance: METAXALONE
  18. FLONASE [Concomitant]
     Active Substance: FLUTICASONE PROPIONATE
  19. MAGNESIUM [Concomitant]
     Active Substance: MAGNESIUM
  20. MILK THISTLE [Concomitant]
     Active Substance: DIETARY SUPPLEMENT\HERBALS\MILK THISTLE
  21. PROMETHEGAN [Concomitant]
     Active Substance: PROMETHAZINE HYDROCHLORIDE
  22. RELISTOR [Concomitant]
     Active Substance: METHYLNALTREXONE BROMIDE
  23. VOLTAREN [Concomitant]
     Active Substance: DICLOFENAC SODIUM
  24. NIFEDIPINE. [Concomitant]
     Active Substance: NIFEDIPINE
  25. PATADAY [Concomitant]
     Active Substance: OLOPATADINE HYDROCHLORIDE
  26. BIOTIN [Concomitant]
     Active Substance: BIOTIN
  27. VITAMIN C [Concomitant]
     Active Substance: ASCORBIC ACID
  28. CYTOMEL [Concomitant]
     Active Substance: LIOTHYRONINE SODIUM
  29. ONDANSETRON [Concomitant]
     Active Substance: ONDANSETRON
  30. TRAZODONE [Concomitant]
     Active Substance: TRAZODONE HYDROCHLORIDE
  31. VIVELLE-DOT [Concomitant]
     Active Substance: ESTRADIOL
  32. VITAMIN B-2 [Concomitant]

REACTIONS (5)
  - Device damage [Unknown]
  - Drug ineffective for unapproved indication [Unknown]
  - Drug withdrawal syndrome [Unknown]
  - Neuralgia [Unknown]
  - Device battery issue [Unknown]

NARRATIVE: CASE EVENT DATE: 2009
